FAERS Safety Report 23830941 (Version 2)
Quarter: 2025Q1

REPORT INFORMATION
  Report Type: Spontaneous
  Country: DE (occurrence: DE)
  Receive Date: 20240508
  Receipt Date: 20250207
  Transmission Date: 20250409
  Serious: Yes (Hospitalization)
  Sender: SANDOZ
  Company Number: DE-ROCHE-3539236

PATIENT
  Age: 45 Year
  Sex: Female
  Weight: 86 kg

DRUGS (17)
  1. CYCLOPHOSPHAMIDE [Suspect]
     Active Substance: CYCLOPHOSPHAMIDE
     Dosage: 1440 MG, TIW (ON 28/MAR/2024, SHE RECEIVED MOST RECENT DOSE OF CYCLOPHOSPHAMIDE 1447.5 MG PRIOR TO A
     Route: 042
     Dates: start: 20240328
  2. CYCLOPHOSPHAMIDE [Suspect]
     Active Substance: CYCLOPHOSPHAMIDE
     Indication: Diffuse large B-cell lymphoma
     Dosage: ON 28/MAR/2024, SHE RECEIVED MOST RECENT DOSE OF CYCLOPHOSPHAMIDE 1447.5 MG PRIOR TO AE ONSET.
     Route: 042
  3. DOXORUBICIN [Suspect]
     Active Substance: DOXORUBICIN
     Indication: Diffuse large B-cell lymphoma
     Dosage: ON 28/MAR/2024, SHE RECEIVED MOST RECENT DOSE OF DOXORUBICIN 96.5 MG PRIOR TO AE ONSET.
     Route: 042
  4. DOXORUBICIN [Suspect]
     Active Substance: DOXORUBICIN
     Dosage: 96 MG, TIW (ON 28/MAR/2024, SHE RECEIVED MOST RECENT DOSE OF DOXORUBICIN 96.5 MG PRIOR TO AE ONSET.)
     Route: 042
     Dates: start: 20240328
  5. PREDNISONE [Suspect]
     Active Substance: PREDNISONE
     Indication: Diffuse large B-cell lymphoma
     Dosage: ON 28/MAR/2024, SHE RECEIVED MOST RECENT DOSE OF PREDNISONE 100 MG PRIOR TO AE ONSET
     Route: 048
     Dates: start: 20240328
  6. POLATUZUMAB VEDOTIN [Suspect]
     Active Substance: POLATUZUMAB VEDOTIN
     Indication: Diffuse large B-cell lymphoma
     Dosage: 154.8 MG, TIW (ON 28/MAR/2024, SHE RECEIVED MOST RECENT DOSE OF POLATUZUMAB VEDOTIN 156.6 MG PRIOR T
     Route: 042
     Dates: start: 20240328
  7. RITUXIMAB [Suspect]
     Active Substance: RITUXIMAB
     Indication: Diffuse large B-cell lymphoma
     Dosage: 720 MG, TIW (ON 28/MAR/2024, SHE RECEIVED MOST RECENT DOSE OF RITUXIMAB 723.75 MG PRIOR TO AE ONSET)
     Route: 042
     Dates: start: 20240329
  8. SULFAMETHOXAZOLE\TRIMETHOPRIM [Concomitant]
     Active Substance: SULFAMETHOXAZOLE\TRIMETHOPRIM
     Indication: Product used for unknown indication
     Route: 048
     Dates: start: 20240401
  9. METAMIZOL [Concomitant]
     Active Substance: METAMIZOLE SODIUM
     Indication: Pain
     Route: 065
     Dates: start: 20240304
  10. METOPROLOL [Concomitant]
     Active Substance: METOPROLOL
     Indication: Sinus tachycardia
     Route: 048
     Dates: start: 20240304
  11. PANTOPRAZOLE SODIUM [Concomitant]
     Active Substance: PANTOPRAZOLE SODIUM
     Indication: Anxiety
     Dosage: 20 MG, QD
     Route: 048
     Dates: start: 20240305
  12. POLATUZUMAB VEDOTIN [Concomitant]
     Active Substance: POLATUZUMAB VEDOTIN
     Indication: Diffuse large B-cell lymphoma
     Dosage: ON 28/MAR/2024, SHE RECEIVED MOST RECENT DOSE OF POLATUZUMAB VEDOTIN 156.6 MG PRIOR TO AE ONSET.
     Route: 065
  13. POLATUZUMAB VEDOTIN [Concomitant]
     Active Substance: POLATUZUMAB VEDOTIN
     Dosage: 154.8 MG, TIW (ON 28/MAR/2024, SHE RECEIVED MOST RECENT DOSE OF POLATUZUMAB VEDOTIN 156.6 MG PRIOR T
     Route: 042
     Dates: start: 20240328
  14. RITUXIMAB [Concomitant]
     Active Substance: RITUXIMAB
     Indication: Diffuse large B-cell lymphoma
     Dosage: ON 28/MAR/2024, SHE RECEIVED MOST RECENT DOSE OF RITUXIMAB 723.75 MG PRIOR TO AE ONSET
     Route: 065
  15. SERTRALINE HYDROCHLORIDE [Concomitant]
     Active Substance: SERTRALINE HYDROCHLORIDE
     Indication: Product used for unknown indication
     Route: 065
     Dates: start: 20240305
  16. TORSEMIDE [Concomitant]
     Active Substance: TORSEMIDE
     Indication: Sternotomy
     Route: 048
     Dates: start: 20240305
  17. VALACYCLOVIR HYDROCHLORIDE [Concomitant]
     Active Substance: VALACYCLOVIR HYDROCHLORIDE
     Indication: Product used for unknown indication
     Route: 048
     Dates: start: 20240328

REACTIONS (1)
  - Vomiting [Recovered/Resolved]

NARRATIVE: CASE EVENT DATE: 20240329
